FAERS Safety Report 6535112-X (Version None)
Quarter: 2010Q1

REPORT INFORMATION
  Report Type: 
  Country: None (occurrence: None)
  Receive Date: 20100113
  Receipt Date: 20100105
  Transmission Date: 20100710
  Serious: Yes (Hospitalization)
  Sender: FDA-Public Use
  Company Number: US-BIOGENIDEC-2007BI025404

PATIENT
  Age: 52 Year
  Sex: Female

DRUGS (5)
  1. TYSABRI [Suspect]
     Indication: MULTIPLE SCLEROSIS
     Route: 042
     Dates: start: 20071001
  2. LAMOTRIGINE [Concomitant]
     Indication: EPILEPSY
     Dates: start: 20050101
  3. KEPPRA [Concomitant]
     Indication: EPILEPSY
     Dates: start: 20050101
  4. TEGRETOL [Concomitant]
     Indication: EPILEPSY
     Dates: start: 20050101
  5. LEXAPRO [Concomitant]
     Indication: DEPRESSION

REACTIONS (2)
  - COGNITIVE DISORDER [None]
  - CONVULSION [None]
